FAERS Safety Report 4470749-3 (Version None)
Quarter: 2004Q4

REPORT INFORMATION
  Report Type: 
  Country: None (occurrence: None)
  Receive Date: 20041011
  Receipt Date: 20040929
  Transmission Date: 20050328
  Serious: Yes (Hospitalization)
  Sender: FDA-Public Use
  Company Number: FR-BRISTOL-MYERS SQUIBB COMPANY-12716346

PATIENT
  Age: 31 Year
  Sex: Male

DRUGS (1)
  1. BRISTOPEN CAPS 500 MG [Suspect]
     Indication: ABSCESS
     Route: 048
     Dates: start: 20040902, end: 20040902

REACTIONS (3)
  - ANXIETY [None]
  - PARAESTHESIA [None]
  - PARALYSIS [None]
